FAERS Safety Report 6507025-0 (Version None)
Quarter: 2009Q4

REPORT INFORMATION
  Report Type: 
  Country: None (occurrence: None)
  Receive Date: 20091221
  Receipt Date: 20091216
  Transmission Date: 20100525
  Serious: Yes (Hospitalization, Other)
  Sender: FDA-Public Use
  Company Number: US-ELI_LILLY_AND_COMPANY-US200910002781

PATIENT
  Sex: Female

DRUGS (16)
  1. HUMULIN N [Suspect]
     Dosage: 50 U, EACH MORNING
  2. HUMULIN N [Suspect]
     Dosage: 100 U, EACH EVENING
  3. HUMULIN N [Suspect]
     Dosage: UNK, AS NEEDED
  4. CYMBALTA [Suspect]
  5. GLUCOTROL XL [Concomitant]
  6. PREVACID [Concomitant]
  7. DETROL LA [Concomitant]
  8. POTASSIUM [Concomitant]
  9. PROTONIX [Concomitant]
     Dosage: 40 MG, EACH MORNING
  10. VITAMIN D [Concomitant]
     Dosage: 100 U, DAILY (1/D)
  11. CALCIUM [Concomitant]
     Dosage: UNK, DAILY (1/D)
  12. COLACE [Concomitant]
     Dosage: UNK, DAILY (1/D)
  13. FLEXERIL [Concomitant]
  14. DIURETICS [Concomitant]
  15. NOVOLOG [Concomitant]
     Dosage: 18 U, AS NEEDED
     Dates: start: 20090901
  16. LANTUS [Concomitant]
     Dosage: 50 U, EACH EVENING

REACTIONS (11)
  - ANAEMIA [None]
  - BLOOD GLUCOSE INCREASED [None]
  - CARDIOMEGALY [None]
  - CHEST PAIN [None]
  - DIABETIC ULCER [None]
  - DRUG INEFFECTIVE [None]
  - GLYCOSYLATED HAEMOGLOBIN INCREASED [None]
  - IMPAIRED GASTRIC EMPTYING [None]
  - NEUROPATHIC ARTHROPATHY [None]
  - SKIN INFECTION [None]
  - WEIGHT DECREASED [None]
